FAERS Safety Report 13706188 (Version 2)
Quarter: 2018Q4

REPORT INFORMATION
  Report Type: Report from Study
  Country: US (occurrence: US)
  Receive Date: 20170630
  Receipt Date: 20181102
  Transmission Date: 20190204
  Serious: Yes (Death, Other)
  Sender: FDA-Public Use
  Company Number: US-PFIZER INC-2017282394

PATIENT
  Age: 82 Year
  Sex: Female

DRUGS (3)
  1. CARBOPLATIN. [Suspect]
     Active Substance: CARBOPLATIN
     Indication: UTERINE CANCER
     Dosage: UNK UNK, CYCLIC (AREA UNDER THE CURVE (AUC) 6 TO 7.5 FOR CYCLES 1 TO 3, CYCLE 2)
  2. CARBOPLATIN. [Suspect]
     Active Substance: CARBOPLATIN
     Dosage: UNK UNK, CYCLIC (ANDAUC5 TO 6 FOR CYCLES 4 TO 6)
  3. PACLITAXEL. [Suspect]
     Active Substance: PACLITAXEL
     Indication: UTERINE CANCER
     Dosage: 175 MG/M2, EVERY 3 WEEKS (OVER 3 HOURS, CYCLE 2)

REACTIONS (4)
  - Thrombocytopenia [Unknown]
  - Neutropenia [Unknown]
  - Anaemia [Unknown]
  - Klebsiella sepsis [Fatal]
